FAERS Safety Report 14229737 (Version 2)
Quarter: 2017Q4

REPORT INFORMATION
  Report Type: Spontaneous
  Country: GR (occurrence: GR)
  Receive Date: 20171128
  Receipt Date: 20171213
  Transmission Date: 20180321
  Serious: Yes (Hospitalization, Other)
  Sender: FDA-Public Use
  Company Number: PHHY2017GR172292

PATIENT
  Age: 77 Year
  Sex: Male

DRUGS (2)
  1. VOTRIENT [Suspect]
     Active Substance: PAZOPANIB HYDROCHLORIDE
     Dosage: 400 MG, UNK
     Route: 065
  2. VOTRIENT [Suspect]
     Active Substance: PAZOPANIB HYDROCHLORIDE
     Indication: RENAL CELL CARCINOMA
     Dosage: 800 MG, UNK
     Route: 065

REACTIONS (6)
  - Muscle spasms [Recovered/Resolved]
  - Blood bilirubin increased [Recovered/Resolved]
  - Arthralgia [Recovered/Resolved]
  - Yellow skin [Recovered/Resolved]
  - Hyperbilirubinaemia [Recovered/Resolved]
  - Pain in extremity [Recovered/Resolved]
